FAERS Safety Report 21066662 (Version 1)
Quarter: 2022Q3

REPORT INFORMATION
  Report Type: Spontaneous
  Country: JP (occurrence: JP)
  Receive Date: 20220711
  Receipt Date: 20220711
  Transmission Date: 20221027
  Serious: Yes (Hospitalization)
  Sender: FDA-Public Use
  Company Number: JP-BIOGEN-2021BI01032591

PATIENT
  Age: 64 Year
  Sex: Female

DRUGS (7)
  1. TECFIDERA [Suspect]
     Active Substance: DIMETHYL FUMARATE
     Indication: Multiple sclerosis
     Route: 050
  2. TECFIDERA [Suspect]
     Active Substance: DIMETHYL FUMARATE
     Route: 050
  3. NEORAL [Concomitant]
     Active Substance: CYCLOSPORINE
     Route: 050
  4. MAGNESIUM OXIDE [Concomitant]
     Active Substance: MAGNESIUM OXIDE
     Route: 050
  5. SENNOSIDES [Concomitant]
     Active Substance: SENNOSIDES
     Route: 050
  6. ALOSENN [Concomitant]
     Route: 050
  7. RABEPRAZOLE SODIUM [Concomitant]
     Active Substance: RABEPRAZOLE SODIUM
     Route: 050

REACTIONS (1)
  - Cardiac failure [Unknown]
